FAERS Safety Report 9662520 (Version 2)
Quarter: 2013Q4

REPORT INFORMATION
  Report Type: Spontaneous
  Country: US (occurrence: US)
  Receive Date: 20131031
  Receipt Date: 20131031
  Transmission Date: 20140711
  Serious: Yes (Hospitalization)
  Sender: FDA-Public Use
  Company Number: US-NAPPMUNDI-USA-2010-0056334

PATIENT
  Sex: Male

DRUGS (1)
  1. OXYCONTIN (NDA 22-272) [Suspect]
     Indication: PRODUCT USED FOR UNKNOWN INDICATION
     Dosage: 40 MG, UNK

REACTIONS (5)
  - Overdose [Unknown]
  - Miosis [Unknown]
  - Wrong technique in drug usage process [Unknown]
  - Intentional drug misuse [Unknown]
  - Inadequate analgesia [Unknown]
